FAERS Safety Report 8213718-X (Version None)
Quarter: 2012Q1

REPORT INFORMATION
  Report Type: 
  Country: None (occurrence: None)
  Receive Date: 20120315
  Receipt Date: 20120307
  Transmission Date: 20120608
  Serious: Yes (Other)
  Sender: FDA-Public Use
  Company Number: US-ASTRAZENECA-2012SE15698

PATIENT
  Age: 66 Year
  Sex: Male

DRUGS (13)
  1. SIMVASTATIN [Concomitant]
  2. OXYBUTYNIN [Concomitant]
  3. CIPROFLOXACIN HYDROCHLORIDE [Concomitant]
  4. LANTUS [Concomitant]
     Dosage: 48 UNITS TWO TIMES A AY
  5. TYLENOL [Concomitant]
     Indication: PAIN
     Dosage: PRN
  6. KEPPRA [Concomitant]
  7. CYMBALTA [Concomitant]
  8. LISINOPRIL [Suspect]
     Route: 048
  9. BRILINTA [Suspect]
     Route: 048
  10. CLONIDINE [Concomitant]
  11. METOPROLOL SUCCINATE [Concomitant]
     Route: 048
  12. ASPIRIN [Concomitant]
  13. HUMALOG [Concomitant]
     Dosage: 10 UNITS THREE TIMES A AY

REACTIONS (1)
  - THROMBOTIC THROMBOCYTOPENIC PURPURA [None]
